FAERS Safety Report 4916662-6 (Version None)
Quarter: 2006Q1

REPORT INFORMATION
  Report Type: 
  Country: None (occurrence: None)
  Receive Date: 20060216
  Receipt Date: 20060216
  Transmission Date: 20060701
  Serious: Yes (Hospitalization)
  Sender: FDA-Public Use
  Company Number: None

PATIENT
  Age: 50 Year
  Sex: Male
  Weight: 81 kg

DRUGS (3)
  1. OXALIPLATIN 130 MG /M2 GIVEN 9/30/05 (FIRST DOSE) [Suspect]
     Indication: COLON CANCER METASTATIC
  2. BAVACIZAMALS [Concomitant]
  3. CAPECITABINE [Concomitant]

REACTIONS (2)
  - NEURALGIA [None]
  - PAIN IN EXTREMITY [None]
